FAERS Safety Report 21966006 (Version 2)
Quarter: 2023Q1

REPORT INFORMATION
  Report Type: Spontaneous
  Country: CA (occurrence: CA)
  Receive Date: 20230208
  Receipt Date: 20230331
  Transmission Date: 20230417
  Serious: Yes (Hospitalization)
  Sender: FDA-Public Use
  Company Number: CA-CELLTRION INC.-2023CA002584

PATIENT

DRUGS (3)
  1. INFLECTRA [Suspect]
     Active Substance: INFLIXIMAB-DYYB
     Dosage: 300 MG, INDUCTION WEEK 5, 600MG THEN DECREASETO300MG, MAINTENANCE EVERY8WEEKS (HOSPITAL START DOSE1)
     Route: 042
     Dates: start: 20230111
  2. INFLECTRA [Suspect]
     Active Substance: INFLIXIMAB-DYYB
     Dosage: 300 MG, INDUCTION WEEK 5, 600MG THEN DECREASE TO 300MG, MAINTENANCE EVERY 8 WEEKS (DOSE2)
     Route: 042
     Dates: start: 20230117
  3. INFLECTRA [Suspect]
     Active Substance: INFLIXIMAB-DYYB
     Dosage: 300 MG, INDUCTION WEEK 5, 600MG THEN DECREASETO300MG, MAINTENANCEEVERY 8WEEKS (DOSE3)
     Route: 042

REACTIONS (3)
  - Illness [Not Recovered/Not Resolved]
  - Off label use [Unknown]
  - Intentional product use issue [Unknown]

NARRATIVE: CASE EVENT DATE: 20230101
